FAERS Safety Report 10519211 (Version 5)
Quarter: 2018Q1

REPORT INFORMATION
  Report Type: Spontaneous
  Country: US (occurrence: US)
  Receive Date: 20141015
  Receipt Date: 20180309
  Transmission Date: 20180508
  Serious: Yes (Hospitalization, Other)
  Sender: FDA-Public Use
  Company Number: US-GLAXOSMITHKLINE-US2014GSK005918

PATIENT
  Age: 81 Year
  Sex: Female

DRUGS (16)
  1. VENTOLIN HFA [Suspect]
     Active Substance: ALBUTEROL SULFATE
     Indication: CHRONIC OBSTRUCTIVE PULMONARY DISEASE
     Dosage: 1 PUFF(S), PRN
  2. FOLIC ACID+VITB12+VITB6+WHEAT DEXTRIN [Concomitant]
  3. NEBULIZER SOLUTION (MEDICATION UNKNOWN) [Concomitant]
     Active Substance: UNSPECIFIED INGREDIENT
  4. VITAMIN B INJECTION [Concomitant]
  5. PREDNISONE. [Concomitant]
     Active Substance: PREDNISONE
  6. OMEPRAZOLE. [Concomitant]
     Active Substance: OMEPRAZOLE
  7. PRESERVISION [Concomitant]
     Active Substance: MINERALS\VITAMINS
  8. AZULFIDINE [Concomitant]
     Active Substance: SULFASALAZINE
  9. ASPIRIN. [Concomitant]
     Active Substance: ASPIRIN
  10. CALCIUM PLUS D [Concomitant]
     Active Substance: CALCIUM\VITAMIN D
  11. TYLENOL EXTRA STRENGTH [Concomitant]
     Active Substance: ACETAMINOPHEN
  12. POTASSIUM CHLORIDE. [Concomitant]
     Active Substance: POTASSIUM CHLORIDE
  13. OXYGEN. [Concomitant]
     Active Substance: OXYGEN
  14. ADVAIR DISKUS [Suspect]
     Active Substance: FLUTICASONE PROPIONATE\SALMETEROL XINAFOATE
     Indication: CHRONIC OBSTRUCTIVE PULMONARY DISEASE
     Dosage: 1 PUFF(S), BID
  15. FUROSEMIDE. [Concomitant]
     Active Substance: FUROSEMIDE
  16. MONTELUKAST [Concomitant]
     Active Substance: MONTELUKAST SODIUM

REACTIONS (17)
  - Product packaging issue [Unknown]
  - Lung infection [Unknown]
  - Productive cough [Not Recovered/Not Resolved]
  - Infectious mononucleosis [Recovered/Resolved]
  - Blood test [Unknown]
  - Bronchitis [Recovering/Resolving]
  - Pneumonia [Unknown]
  - Cataract operation [Recovered/Resolved]
  - Dry age-related macular degeneration [Not Recovered/Not Resolved]
  - Blood potassium decreased [Unknown]
  - Hip arthroplasty [Not Recovered/Not Resolved]
  - Arthritis [Recovering/Resolving]
  - Pneumonia [Recovered/Resolved]
  - Bursitis [Recovering/Resolving]
  - Drug ineffective [Unknown]
  - Medical procedure [Recovered/Resolved]
  - Blood magnesium decreased [Unknown]

NARRATIVE: CASE EVENT DATE: 1998
